FAERS Safety Report 4962834-4 (Version None)
Quarter: 2006Q1

REPORT INFORMATION
  Report Type: 
  Country: None (occurrence: None)
  Receive Date: 20060331
  Receipt Date: 20060322
  Transmission Date: 20060701
  Serious: Yes (Other)
  Sender: FDA-Public Use
  Company Number: HQWYE464422MAR06

PATIENT
  Age: 4 Year
  Sex: Female

DRUGS (10)
  1. TAZOCIN (PIPERACILLIN/TAZOBACTAM, INJECTION) [Suspect]
     Indication: C-REACTIVE PROTEIN INCREASED
     Dosage: INTRAVENOUS DRIP
     Route: 041
  2. TAZOCIN (PIPERACILLIN/TAZOBACTAM, INJECTION) [Suspect]
     Indication: PYREXIA
     Dosage: INTRAVENOUS DRIP
     Route: 041
  3. ALL-TRANS RETINOIC ACID (ALL-TRANS RETINOIC ACID, ) [Suspect]
     Indication: ACUTE MYELOID LEUKAEMIA
     Dosage: SEE IMAGE
     Route: 048
  4. CARBENIN (BETAMIPRON/PANIPENEM, ) [Suspect]
     Indication: INFECTION
     Dosage: INTRAVENOUS
     Route: 042
  5. CARBENIN (BETAMIPRON/PANIPENEM, ) [Suspect]
     Indication: PYREXIA
     Dosage: INTRAVENOUS
     Route: 042
  6. CEFTAZIDIME [Suspect]
     Indication: C-REACTIVE PROTEIN INCREASED
     Dosage: INTRAVENOUS
     Route: 042
  7. CEFTAZIDIME [Suspect]
     Indication: PYREXIA
     Dosage: INTRAVENOUS
     Route: 042
  8. NAFAMOSTAT MESILATE (NAFAMOSTAT MESILATE) [Concomitant]
  9. CYTARABINE [Concomitant]
  10. DAUNOMYCIN (DAUNORUBICIN) [Concomitant]

REACTIONS (8)
  - ALANINE AMINOTRANSFERASE INCREASED [None]
  - ASPARTATE AMINOTRANSFERASE INCREASED [None]
  - BLOOD LACTATE DEHYDROGENASE INCREASED [None]
  - EPSTEIN-BARR VIRUS INFECTION [None]
  - HISTIOCYTOSIS HAEMATOPHAGIC [None]
  - INFECTION [None]
  - INTERLEUKIN LEVEL INCREASED [None]
  - SERUM FERRITIN INCREASED [None]
